FAERS Safety Report 22073113 (Version 2)
Quarter: 2023Q1

REPORT INFORMATION
  Report Type: Spontaneous
  Country: US (occurrence: US)
  Receive Date: 20230308
  Receipt Date: 20230320
  Transmission Date: 20230418
  Serious: No
  Sender: FDA-Public Use
  Company Number: US-JNJFOC-20230301295

PATIENT
  Age: 61 Year
  Sex: Female

DRUGS (3)
  1. TYLENOL [Suspect]
     Active Substance: ACETAMINOPHEN
     Indication: Headache
     Route: 065
  2. TREPROSTINIL [Concomitant]
     Active Substance: TREPROSTINIL
     Indication: Pulmonary arterial hypertension
     Route: 048
     Dates: start: 202301
  3. TREPROSTINIL [Concomitant]
     Active Substance: TREPROSTINIL
     Route: 048
     Dates: start: 202203

REACTIONS (1)
  - Therapeutic product effect incomplete [Unknown]
